FAERS Safety Report 5758902-X (Version None)
Quarter: 2008Q2

REPORT INFORMATION
  Report Type: 
  Country: None (occurrence: None)
  Receive Date: 20080603
  Receipt Date: 20080603
  Transmission Date: 20081010
  Serious: No
  Sender: FDA-Public Use
  Company Number: None

PATIENT
  Sex: Female

DRUGS (2)
  1. AMOXICILLIN [Suspect]
     Indication: EAR INFECTION
  2. CECLOR [Suspect]
     Indication: EAR INFECTION

REACTIONS (3)
  - TOOTH DECALCIFICATION [None]
  - TOOTH DISCOLOURATION [None]
  - TOOTH MALFORMATION [None]
